FAERS Safety Report 8021247-1 (Version None)
Quarter: 2011Q4

REPORT INFORMATION
  Report Type: 
  Country: None (occurrence: None)
  Receive Date: 20111230
  Receipt Date: 20111230
  Transmission Date: 20120403
  Serious: Yes (Hospitalization)
  Sender: FDA-Public Use
  Company Number: None

PATIENT
  Age: 25 Year
  Sex: Male
  Weight: 81.8 kg

DRUGS (3)
  1. MIRTAZAPINE [Suspect]
     Indication: ANXIETY
     Dosage: 15 MG AT BEDTIME PO
     Route: 048
     Dates: start: 20101006, end: 20110606
  2. MIRTAZAPINE [Suspect]
     Indication: DEPRESSION
     Dosage: 15 MG AT BEDTIME PO
     Route: 048
     Dates: start: 20101006, end: 20110606
  3. GABAPENTIN [Suspect]
     Indication: ANXIETY
     Dosage: 100 MG TID PO
     Route: 048
     Dates: start: 20101006, end: 20110606

REACTIONS (3)
  - HYPOTENSION [None]
  - TACHYCARDIA [None]
  - SUICIDE ATTEMPT [None]
